FAERS Safety Report 4313416-9 (Version None)
Quarter: 2004Q1

REPORT INFORMATION
  Report Type: 
  Country: None (occurrence: None)
  Receive Date: 20040308
  Receipt Date: 20040224
  Transmission Date: 20041129
  Serious: Yes (Death)
  Sender: FDA-Public Use
  Company Number: WAES 0402USA01987

PATIENT
  Age: 76 Year
  Sex: Male

DRUGS (7)
  1. ASPIRIN [Concomitant]
     Route: 048
     Dates: start: 20031219, end: 20040207
  2. ENALAPRIL MALEATE [Suspect]
     Route: 048
     Dates: start: 20040115, end: 20040207
  3. PEPCID RPD [Suspect]
     Route: 048
     Dates: start: 20031219, end: 20040207
  4. LASIX [Concomitant]
     Route: 048
     Dates: start: 20031223, end: 20040207
  5. CRAVIT [Concomitant]
     Route: 048
     Dates: start: 20040106, end: 20040207
  6. SPIRONOLACTONE [Concomitant]
     Route: 048
     Dates: start: 20040115, end: 20040207
  7. PANALDINE [Suspect]
     Route: 048
     Dates: start: 20040122, end: 20040207

REACTIONS (3)
  - ACUTE RESPIRATORY DISTRESS SYNDROME [None]
  - AGRANULOCYTOSIS [None]
  - PNEUMONIA [None]
